FAERS Safety Report 19248763 (Version 2)
Quarter: 2021Q2

REPORT INFORMATION
  Report Type: Report from Study
  Country: NL (occurrence: NL)
  Receive Date: 20210512
  Receipt Date: 20210519
  Transmission Date: 20210717
  Serious: Yes (Hospitalization, Other)
  Sender: FDA-Public Use
  Company Number: NL-IPSEN BIOPHARMACEUTICALS, INC.-2021-06857

PATIENT
  Age: 59 Year
  Sex: Male

DRUGS (3)
  1. SOMATULINE AUTOSOLUTION [Suspect]
     Active Substance: LANREOTIDE ACETATE
     Indication: NEUROENDOCRINE TUMOUR
     Route: 058
     Dates: start: 20191115
  2. NOVORAPID INSULINE [Concomitant]
  3. TOUJEO INSULINE [Concomitant]

REACTIONS (3)
  - Gastric ulcer [Recovered/Resolved]
  - Metastases to liver [Recovered/Resolved]
  - Gastritis [Recovered/Resolved]

NARRATIVE: CASE EVENT DATE: 20210309
